FAERS Safety Report 14680465 (Version 2)
Quarter: 2018Q2

REPORT INFORMATION
  Report Type: Spontaneous
  Country: US (occurrence: US)
  Receive Date: 20180326
  Receipt Date: 20180514
  Transmission Date: 20180711
  Serious: Yes (Other)
  Sender: FDA-Public Use
  Company Number: US-AVEDRO-AVE-2018-0058-AE

PATIENT
  Age: 23 Year
  Sex: Female

DRUGS (1)
  1. KXL SYSTEM [Suspect]
     Active Substance: DEVICE
     Indication: PRODUCT USED FOR UNKNOWN INDICATION
     Route: 047
     Dates: start: 20180219, end: 20180219

REACTIONS (2)
  - Corneal perforation [Unknown]
  - Eye inflammation [Unknown]

NARRATIVE: CASE EVENT DATE: 201802
